FAERS Safety Report 7224020-7 (Version None)
Quarter: 2011Q1

REPORT INFORMATION
  Report Type: 
  Country: None (occurrence: None)
  Receive Date: 20110113
  Receipt Date: 20110104
  Transmission Date: 20110831
  Serious: No
  Sender: FDA-Public Use
  Company Number: US-BIOGENIDEC-2011BI001106

PATIENT
  Sex: Female

DRUGS (2)
  1. TYSABRI [Suspect]
     Route: 042
     Dates: start: 20100823
  2. TYSABRI [Suspect]
     Indication: MULTIPLE SCLEROSIS
     Route: 042
     Dates: start: 20080313, end: 20090312

REACTIONS (6)
  - MIDDLE INSOMNIA [None]
  - POSTURE ABNORMAL [None]
  - URINARY INCONTINENCE [None]
  - URINARY TRACT INFECTION [None]
  - GENERAL SYMPTOM [None]
  - ASTHENIA [None]
